FAERS Safety Report 21788350 (Version 1)
Quarter: 2022Q4

REPORT INFORMATION
  Report Type: Spontaneous
  Country: US (occurrence: US)
  Receive Date: 20221228
  Receipt Date: 20221228
  Transmission Date: 20230112
  Serious: No
  Sender: FDA-Public Use
  Company Number: US-PFIZER INC-202201391820

PATIENT
  Sex: Male

DRUGS (2)
  1. PAXLOVID [Suspect]
     Active Substance: NIRMATRELVIR\RITONAVIR
     Indication: COVID-19 treatment
     Dosage: ALL THREE TABLETS TAKEN TOGETHER ORALLY TWICE DAILY
     Route: 048
  2. IVERMECTIN [Suspect]
     Active Substance: IVERMECTIN
     Indication: COVID-19
     Dosage: 100 ML
     Dates: start: 20221221

REACTIONS (4)
  - Feeling abnormal [Unknown]
  - Visual impairment [Unknown]
  - Visual acuity reduced [Unknown]
  - Bradyphrenia [Unknown]
